FAERS Safety Report 16142589 (Version 2)
Quarter: 2021Q2

REPORT INFORMATION
  Report Type: Spontaneous
  Country: CA (occurrence: CA)
  Receive Date: 20190401
  Receipt Date: 20210409
  Transmission Date: 20210716
  Serious: Yes (Other)
  Sender: FDA-Public Use
  Company Number: CA-BRISTOL-MYERS SQUIBB COMPANY-BMS-2019-028024

PATIENT
  Age: 75 Year
  Sex: Female

DRUGS (8)
  1. SULFASALAZINE. [Concomitant]
     Active Substance: SULFASALAZINE
     Indication: PRODUCT USED FOR UNKNOWN INDICATION
     Dosage: UNK
     Route: 065
  2. ASPIRIN [ACETYLSALICYLIC ACID] [Concomitant]
     Active Substance: ASPIRIN
     Indication: PRODUCT USED FOR UNKNOWN INDICATION
     Dosage: UNK
     Route: 065
  3. PREDNISONE. [Suspect]
     Active Substance: PREDNISONE
     Indication: PRODUCT USED FOR UNKNOWN INDICATION
     Dosage: UNK
     Route: 065
  4. PLAQUENIL [HYDROXYCHLOROQUINE PHOSPHATE] [Concomitant]
     Active Substance: HYDROXYCHLOROQUINE DIPHOSPHATE
     Indication: PRODUCT USED FOR UNKNOWN INDICATION
     Dosage: UNK
     Route: 065
  5. ORENCIA [Suspect]
     Active Substance: ABATACEPT
     Indication: RHEUMATOID ARTHRITIS
     Dosage: 500 MILLIGRAM, Q4WK
     Route: 042
  6. ARAVA [Concomitant]
     Active Substance: LEFLUNOMIDE
     Indication: PRODUCT USED FOR UNKNOWN INDICATION
     Dosage: UNK
     Route: 065
  7. HUMIRA [Suspect]
     Active Substance: ADALIMUMAB
     Indication: PRODUCT USED FOR UNKNOWN INDICATION
     Dosage: UNK
     Route: 058
  8. METHOTREXATE. [Concomitant]
     Active Substance: METHOTREXATE
     Indication: PRODUCT USED FOR UNKNOWN INDICATION
     Dosage: UNK
     Route: 065

REACTIONS (22)
  - Blood creatinine increased [Recovering/Resolving]
  - Sputum discoloured [Recovering/Resolving]
  - Visual impairment [Recovering/Resolving]
  - Weight decreased [Recovering/Resolving]
  - Asthenia [Recovering/Resolving]
  - Malignant melanoma [Recovering/Resolving]
  - Productive cough [Recovering/Resolving]
  - Wound [Recovering/Resolving]
  - Fluid retention [Recovering/Resolving]
  - Nasopharyngitis [Recovering/Resolving]
  - Oedema [Recovering/Resolving]
  - Renal impairment [Recovering/Resolving]
  - Scab [Recovering/Resolving]
  - Contusion [Recovering/Resolving]
  - Muscle spasms [Recovering/Resolving]
  - Skin laceration [Recovering/Resolving]
  - Blood glucose decreased [Recovering/Resolving]
  - Inflammatory pain [Recovering/Resolving]
  - Pain in extremity [Recovering/Resolving]
  - Skin discolouration [Recovering/Resolving]
  - Hypotension [Recovering/Resolving]
  - Wound infection [Recovering/Resolving]
